FAERS Safety Report 12331051 (Version 1)
Quarter: 2016Q2

REPORT INFORMATION
  Report Type: Report from Study
  Country: AR (occurrence: AR)
  Receive Date: 20160504
  Receipt Date: 20160504
  Transmission Date: 20160815
  Serious: Yes (Other)
  Sender: FDA-Public Use
  Company Number: PHHY2016AR051063

PATIENT
  Sex: Female

DRUGS (2)
  1. EXFORGE [Suspect]
     Active Substance: AMLODIPINE BESYLATE\VALSARTAN
     Indication: HYPERTENSION
     Dosage: 1 DF (AMLODIPINE 10 OT, VALSARTAN 160 OT), QD (SINCE 6 MONTH AGO)
     Route: 065
  2. DIOVAN [Suspect]
     Active Substance: VALSARTAN
     Indication: HYPERTENSION
     Dosage: 1 DF (160, UNITS NOT PROVIDED), QD (SINCE 6 MONTHS AGO)
     Route: 065

REACTIONS (8)
  - Varicose ulceration [Recovering/Resolving]
  - Blood pressure increased [Recovering/Resolving]
  - Visual impairment [Unknown]
  - Fall [Unknown]
  - Speech disorder [Not Recovered/Not Resolved]
  - Nervousness [Recovering/Resolving]
  - Impaired healing [Unknown]
  - Dizziness [Unknown]
